FAERS Safety Report 10644998 (Version 1)
Quarter: 2014Q4

REPORT INFORMATION
  Report Type: Spontaneous
  Country: US (occurrence: None)
  Receive Date: 20141210
  Receipt Date: 20141210
  Transmission Date: 20150529
  Serious: Yes (Other)
  Sender: FDA-Public Use
  Company Number: None

PATIENT
  Age: 45 Year
  Sex: Female
  Weight: 61.24 kg

DRUGS (1)
  1. CIPROFLOXACIN. [Suspect]
     Active Substance: CIPROFLOXACIN
     Indication: PNEUMONIA
     Dosage: 1 PILL, TWICE DAILY, TAKEN BY MOUTH
     Route: 048
     Dates: start: 20141001, end: 20141010

REACTIONS (9)
  - Musculoskeletal chest pain [None]
  - Toxicity to various agents [None]
  - Joint range of motion decreased [None]
  - Cartilage injury [None]
  - Tendon rupture [None]
  - Pain [None]
  - Arthralgia [None]
  - Joint crepitation [None]
  - Rotator cuff syndrome [None]

NARRATIVE: CASE EVENT DATE: 20141125
